FAERS Safety Report 6327816-9 (Version None)
Quarter: 2009Q3

REPORT INFORMATION
  Report Type: 
  Country: None (occurrence: None)
  Receive Date: 20090824
  Receipt Date: 20090806
  Transmission Date: 20100115
  Serious: Yes (Death)
  Sender: FDA-Public Use
  Company Number: 2009AL005335

PATIENT
  Age: 87 Year
  Sex: Female

DRUGS (1)
  1. DICLOFENAC SODIUM [Suspect]
     Indication: OSTEOPOROSIS
     Dosage: 75 MG; BID; PO
     Route: 048
     Dates: end: 20090713

REACTIONS (1)
  - UPPER GASTROINTESTINAL HAEMORRHAGE [None]
